FAERS Safety Report 16924567 (Version 2)
Quarter: 2019Q4

REPORT INFORMATION
  Report Type: Spontaneous
  Country: MX (occurrence: MX)
  Receive Date: 20191016
  Receipt Date: 20191017
  Transmission Date: 20200122
  Serious: Yes (Other)
  Sender: FDA-Public Use
  Company Number: MX-NAPPMUNDI-GBR-2019-0070509

PATIENT
  Age: 84 Year
  Sex: Female

DRUGS (5)
  1. SOLORO7 [Suspect]
     Active Substance: BUPRENORPHINE
     Indication: NEURALGIA
     Dosage: 1 DF, WEEKLY (STRENGTH 10MG)
     Route: 062
     Dates: start: 201908, end: 201908
  2. AMITRIPTYLINE [Concomitant]
     Active Substance: AMITRIPTYLINE
     Indication: PAIN
     Dosage: 1 DF, DAILY
     Route: 048
  3. PREGABALIN. [Concomitant]
     Active Substance: PREGABALIN
     Indication: PAIN
     Dosage: 1 DF, UNK
     Route: 048
  4. METFORMIN [Concomitant]
     Active Substance: METFORMIN HYDROCHLORIDE
     Indication: DIABETES MELLITUS
     Dosage: 1 DF, DAILY
     Route: 048
  5. TRADOL [Concomitant]
     Active Substance: TRAMADOL HYDROCHLORIDE
     Indication: PAIN
     Dosage: 1 DF, DAILY
     Route: 048

REACTIONS (5)
  - Erythema [Recovering/Resolving]
  - Burning sensation [Recovering/Resolving]
  - Oliguria [Recovered/Resolved]
  - Swelling [Recovering/Resolving]
  - Blister [Recovering/Resolving]

NARRATIVE: CASE EVENT DATE: 20190824
